FAERS Safety Report 6362346-X (Version None)
Quarter: 2009Q3

REPORT INFORMATION
  Report Type: 
  Country: None (occurrence: None)
  Receive Date: 20090918
  Receipt Date: 20090603
  Transmission Date: 20100115
  Serious: No
  Sender: FDA-Public Use
  Company Number: US-ABBOTT-09P-163-0571666-00

PATIENT
  Sex: Female
  Weight: 79.45 kg

DRUGS (11)
  1. HUMIRA [Suspect]
     Indication: RHEUMATOID ARTHRITIS
     Dates: start: 20090324
  2. HUMIRA [Suspect]
     Indication: CROHN'S DISEASE
  3. HUMIRA [Suspect]
  4. LAMICTAL [Concomitant]
     Indication: CONVULSION
     Dosage: 300 MG IN AM, 400 MG IN PM
  5. LAMICTAL [Concomitant]
  6. SINGULAIR [Concomitant]
     Indication: ASTHMA
  7. PLAQUENIL [Concomitant]
     Indication: DRUG USE FOR UNKNOWN INDICATION
  8. PROTONIX [Concomitant]
     Indication: GASTROOESOPHAGEAL REFLUX DISEASE
  9. KEPPRA [Concomitant]
     Indication: CONVULSION
  10. XANAX [Concomitant]
     Indication: DRUG USE FOR UNKNOWN INDICATION
  11. ADVAIR HFA [Concomitant]
     Indication: ASTHMA

REACTIONS (11)
  - ASTHMA [None]
  - CHEST PAIN [None]
  - DRUG DOSE OMISSION [None]
  - ERYTHEMA [None]
  - HAEMORRHOIDS [None]
  - INJECTION SITE ERYTHEMA [None]
  - NAUSEA [None]
  - NODULE [None]
  - OEDEMA PERIPHERAL [None]
  - PAIN [None]
  - PAIN OF SKIN [None]
